FAERS Safety Report 8575001-2 (Version None)
Quarter: 2012Q3

REPORT INFORMATION
  Report Type: 
  Country: None (occurrence: None)
  Receive Date: 20120807
  Receipt Date: 20120723
  Transmission Date: 20120928
  Serious: Yes (Hospitalization)
  Sender: FDA-Public Use
  Company Number: NL-MILLENNIUM PHARMACEUTICALS, INC.-2012-05182

PATIENT

DRUGS (8)
  1. VELCADE [Suspect]
     Indication: MULTIPLE MYELOMA
     Dosage: UNK
     Dates: start: 20120716
  2. OMEPRAZOLE [Concomitant]
     Dosage: 40 MG, UNK
  3. FLUCONAZOLE [Concomitant]
     Dosage: 150 MG, UNK
  4. ZELITREX                           /01269701/ [Concomitant]
     Dosage: 500 MG, UNK
  5. CYCLOPHOSPHAMIDE [Suspect]
     Indication: MULTIPLE MYELOMA
     Dosage: UNK
     Dates: start: 20120716
  6. DEXAMETHASONE [Suspect]
     Indication: MULTIPLE MYELOMA
     Dosage: UNK
     Dates: start: 20120716
  7. CIPROXIN                           /00697201/ [Concomitant]
     Dosage: 500 MG, UNK
  8. METOCLOPRAMIDE [Concomitant]
     Dosage: 10 MG, UNK

REACTIONS (2)
  - THROMBOCYTOPENIA [None]
  - DIABETES MELLITUS [None]
